FAERS Safety Report 8445532-4 (Version None)
Quarter: 2012Q2

REPORT INFORMATION
  Report Type: 
  Country: None (occurrence: None)
  Receive Date: 20120618
  Receipt Date: 20120611
  Transmission Date: 20120825
  Serious: No
  Sender: FDA-Public Use
  Company Number: US-B.I. PHARMACEUTICALS,INC./RIDGEFIELD-2012-BP-13463BP

PATIENT
  Age: 86 Year
  Sex: Female

DRUGS (3)
  1. GLIPIZIDE [Concomitant]
     Indication: DIABETES MELLITUS
  2. LEVOTHYROXINE SODIUM [Concomitant]
     Indication: HYPOTHYROIDISM
  3. PRADAXA [Suspect]
     Indication: ATRIAL FIBRILLATION
     Dosage: 300 MG
     Route: 048
     Dates: start: 20111201

REACTIONS (4)
  - FEELING ABNORMAL [None]
  - ASTHENIA [None]
  - WEIGHT DECREASED [None]
  - LETHARGY [None]
